FAERS Safety Report 5078336-3 (Version None)
Quarter: 2006Q3

REPORT INFORMATION
  Report Type: 
  Country: None (occurrence: None)
  Receive Date: 20060811
  Receipt Date: 20060215
  Transmission Date: 20061208
  Serious: Yes (Hospitalization, Other)
  Sender: FDA-Public Use
  Company Number: PHEH2006US02181

PATIENT
  Age: 61 Year
  Sex: Female
  Weight: 82 kg

DRUGS (8)
  1. EXJADE [Suspect]
     Indication: BLOOD IRON INCREASED
     Dosage: 1500 MG, QD
     Route: 048
     Dates: start: 20060125, end: 20060131
  2. TOPROL-XL [Concomitant]
     Dosage: 25 MG, QD
  3. CIPRO [Concomitant]
     Dosage: 500 MG, QD
     Route: 048
  4. TYLENOL EXTENDED RELIEF [Concomitant]
     Dosage: UNK, PRN
  5. VIDAZA [Concomitant]
     Dosage: 75 MG/M2 X6 DAYS Q4 WKS
  6. NEULASTA [Concomitant]
     Dosage: 6MG SQ FOLLOWING CHEMO
     Route: 058
  7. CHEMOTHERAPEUTICS,OTHER [Concomitant]
  8. ATARAX [Concomitant]

REACTIONS (21)
  - ABSCESS [None]
  - ASTHENIA [None]
  - BLOOD AMYLASE ABNORMAL [None]
  - BLOOD CREATININE INCREASED [None]
  - BLOOD GLUCOSE INCREASED [None]
  - BLOOD POTASSIUM DECREASED [None]
  - BLOOD UREA INCREASED [None]
  - COUGH [None]
  - DRUG ERUPTION [None]
  - FATIGUE [None]
  - HAEMATOCRIT DECREASED [None]
  - HAEMOGLOBIN DECREASED [None]
  - LIPASE ABNORMAL [None]
  - NEUTROPHIL COUNT DECREASED [None]
  - PYREXIA [None]
  - RASH GENERALISED [None]
  - RASH PRURITIC [None]
  - RED BLOOD CELL COUNT DECREASED [None]
  - SKIN BURNING SENSATION [None]
  - URTICARIA [None]
  - WHITE BLOOD CELL COUNT DECREASED [None]
